FAERS Safety Report 9946987 (Version 1)
Quarter: 2014Q1

REPORT INFORMATION
  Report Type: Report from Study
  Country: US (occurrence: US)
  Receive Date: 20140303
  Receipt Date: 20140303
  Transmission Date: 20141002
  Serious: No
  Sender: FDA-Public Use
  Company Number: US-ABBVIE-13P-163-1062859-00

PATIENT
  Age: 40 Year
  Sex: Male

DRUGS (11)
  1. HUMIRA [Suspect]
     Indication: CROHN^S DISEASE
     Dates: start: 20120702
  2. CALCIUM [Suspect]
     Indication: PRODUCT USED FOR UNKNOWN INDICATION
  3. VITAMIN D NOS [Suspect]
     Indication: PRODUCT USED FOR UNKNOWN INDICATION
  4. NORVASC [Suspect]
     Indication: HYPERTENSION
  5. PREDNISONE [Suspect]
     Indication: PRODUCT USED FOR UNKNOWN INDICATION
  6. PREDNISONE [Suspect]
     Dosage: X 3 WEEKS
  7. PREDNISONE [Suspect]
     Dosage: TAPERED DOWN SLOWLY
     Dates: end: 20121106
  8. OMEPRAZOLE [Concomitant]
     Indication: GASTROOESOPHAGEAL REFLUX DISEASE
  9. ATIVAN [Concomitant]
     Indication: ANXIETY
     Dosage: UP TO 2 TABLETS DAILY AS NEEDED
  10. VITAMIN B [Concomitant]
     Indication: MALABSORPTION
     Dosage: MONTHLY
  11. LISINOPRIL [Concomitant]
     Indication: HYPERTENSION

REACTIONS (8)
  - Drug ineffective [Unknown]
  - Drug ineffective [Recovered/Resolved]
  - Injury [Unknown]
  - Fibula fracture [Unknown]
  - Bone pain [Unknown]
  - Arthralgia [Unknown]
  - Nephrolithiasis [Unknown]
  - Arthritis [Unknown]
